FAERS Safety Report 8405854-X (Version None)
Quarter: 2012Q2

REPORT INFORMATION
  Report Type: 
  Country: None (occurrence: None)
  Receive Date: 20120529
  Receipt Date: 20051201
  Transmission Date: 20120825
  Serious: Yes (Hospitalization)
  Sender: FDA-Public Use
  Company Number: 15691-USA-05-3001

PATIENT
  Age: 47 Year
  Sex: Male

DRUGS (9)
  1. TOLVAPTAN (TOLVAPTAN(V4.1)) 30MG [Suspect]
     Indication: CARDIAC FAILURE CONGESTIVE
     Dosage: 30 MG, QD, ORAL
     Route: 048
     Dates: start: 20051031
  2. HYDROCHLOROTHIAZIDE [Concomitant]
  3. ACENOCOUMAROL (ACENOCOMAROL) [Concomitant]
  4. OMEPRAZOLE [Concomitant]
  5. FUROSEMIDE [Concomitant]
  6. SPIRONOLACTONE [Concomitant]
  7. ENALAPRIL MALEATE [Concomitant]
  8. CARVEDILOL [Concomitant]
  9. DIGOXIN [Concomitant]

REACTIONS (5)
  - CONDITION AGGRAVATED [None]
  - CARDIAC FAILURE [None]
  - HEPATOMEGALY [None]
  - CARDIOMEGALY [None]
  - BLOOD PRESSURE DECREASED [None]
